FAERS Safety Report 10890281 (Version 1)
Quarter: 2015Q1

REPORT INFORMATION
  Report Type: Spontaneous
  Country: CH (occurrence: CH)
  Receive Date: 20150305
  Receipt Date: 20150305
  Transmission Date: 20150721
  Serious: Yes (Death, Hospitalization)
  Sender: FDA-Public Use
  Company Number: CH-RANBAXY-2014R1-81444

PATIENT
  Age: 75 Year
  Sex: Female
  Weight: 44 kg

DRUGS (3)
  1. ENALAPRIL [Suspect]
     Active Substance: ENALAPRIL
     Indication: PROCEDURAL HYPERTENSION
     Dosage: UNK
     Route: 048
  2. SULFASALAZINE. [Suspect]
     Active Substance: SULFASALAZINE
     Indication: RHEUMATOID ARTHRITIS
     Dosage: 500 MG, BID
     Route: 065
  3. IBUPROFEN. [Suspect]
     Active Substance: IBUPROFEN
     Indication: RHEUMATOID ARTHRITIS
     Dosage: 400 MG, TID
     Route: 065

REACTIONS (11)
  - Lactic acidosis [Unknown]
  - Multi-organ failure [Fatal]
  - Sepsis [Fatal]
  - Mental status changes [Unknown]
  - Bacterial infection [Unknown]
  - Respiratory gas exchange disorder [Unknown]
  - Renal impairment [Unknown]
  - Oedematous pancreatitis [Unknown]
  - Gastrointestinal necrosis [Fatal]
  - Hyperamylasaemia [Unknown]
  - Hypotension [Recovering/Resolving]
